FAERS Safety Report 8481128-6 (Version None)
Quarter: 2012Q3

REPORT INFORMATION
  Report Type: 
  Country: None (occurrence: None)
  Receive Date: 20120702
  Receipt Date: 20120626
  Transmission Date: 20120928
  Serious: Yes (Disabling)
  Sender: FDA-Public Use
  Company Number: PHHY2012EC055731

PATIENT
  Sex: Female

DRUGS (1)
  1. ZOLEDRONOC ACID [Suspect]
     Indication: OSTEOPOROSIS
     Dosage: 5 MG/100 ML STAT
     Route: 042
     Dates: start: 20090531

REACTIONS (3)
  - FALL [None]
  - MUSCLE CONTRACTURE [None]
  - JOINT INJURY [None]
